FAERS Safety Report 6069545-5 (Version None)
Quarter: 2009Q1

REPORT INFORMATION
  Report Type: 
  Country: None (occurrence: None)
  Receive Date: 20090206
  Receipt Date: 20090129
  Transmission Date: 20090719
  Serious: Yes (Other)
  Sender: FDA-Public Use
  Company Number: HU-B.I. PHARMACEUTICALS,INC./RIDGEFIELD-2009-AP-00001AP

PATIENT
  Sex: Female
  Weight: 75 kg

DRUGS (5)
  1. MICARDIS HCT [Suspect]
     Indication: HYPERTENSION
     Dosage: 40NR
     Route: 048
     Dates: start: 20081201, end: 20090107
  2. DONALGIN [Suspect]
     Indication: PAIN
     Dosage: 250MG
     Dates: start: 20081226, end: 20090107
  3. MERCKFORMIN [Concomitant]
     Indication: DIABETES MELLITUS
     Dosage: 1700MG
     Dates: start: 20040101
  4. DIAPREL MR [Concomitant]
     Indication: DIABETES MELLITUS
     Dosage: 30MG
     Dates: start: 20040101
  5. TENSIOMIN [Concomitant]
     Indication: HYPERTENSION
     Dosage: 12.5MG
     Dates: start: 20081001, end: 20090107

REACTIONS (3)
  - DYSPHAGIA [None]
  - FACE OEDEMA [None]
  - LIP OEDEMA [None]
